FAERS Safety Report 9160747 (Version 1)
Quarter: 2013Q1

REPORT INFORMATION
  Report Type: Spontaneous
  Country: GB (occurrence: GB)
  Receive Date: 20130313
  Receipt Date: 20130313
  Transmission Date: 20140127
  Serious: Yes (Hospitalization)
  Sender: FDA-Public Use
  Company Number: GB-BAYER-2013-028693

PATIENT
  Age: 44 Year
  Sex: Male

DRUGS (7)
  1. CIPROXIN [Suspect]
     Indication: URINARY TRACT INFECTION
     Dosage: UNK
     Route: 048
  2. AUGMENTIN [Concomitant]
  3. CEFALEXIN [Concomitant]
  4. LANSOPRAZOLE [Concomitant]
     Dosage: 15 MG, UNK
  5. RIZATRIPTAN [Concomitant]
  6. TRIMETHOPRIM [Concomitant]
  7. CHLORHEXIDINE [Concomitant]

REACTIONS (2)
  - Tendon rupture [Recovering/Resolving]
  - Contusion [Recovering/Resolving]
